FAERS Safety Report 23831245 (Version 1)
Quarter: 2024Q2

REPORT INFORMATION
  Report Type: Spontaneous
  Country: CN (occurrence: CN)
  Receive Date: 20240508
  Receipt Date: 20240508
  Transmission Date: 20240715
  Serious: Yes (Other)
  Sender: FDA-Public Use
  Company Number: CN-PFIZER INC-PV202400058988

PATIENT
  Age: 61 Year
  Sex: Male
  Weight: 100 kg

DRUGS (1)
  1. VFEND [Suspect]
     Active Substance: VORICONAZOLE
     Indication: Aspergillus infection
     Dosage: 1.000 MG, 1X/DAY
     Route: 041
     Dates: start: 20240104, end: 20240113

REACTIONS (1)
  - Arrhythmia [Recovering/Resolving]

NARRATIVE: CASE EVENT DATE: 20240112
